FAERS Safety Report 9306920 (Version 1)
Quarter: 2013Q1

REPORT INFORMATION
  Report Type: Spontaneous
  Country: US (occurrence: None)
  Receive Date: 20130222
  Receipt Date: 20130222
  Transmission Date: 20140127
  Serious: Yes (Hospitalization)
  Sender: FDA-Public Use
  Company Number: ACO_30963_2012

PATIENT
  Age: 59 Year
  Sex: Female
  Weight: 63.5 kg

DRUGS (13)
  1. AMPYRA (DALFAMPRIDINE) TABLET, 10MG [Suspect]
     Indication: MULTIPLE SCLEROSIS
     Route: 048
     Dates: start: 20120628, end: 20120629
  2. AMLODIPINE (AMLODIPINE) [Concomitant]
  3. CLOPIDOGREL (CLOPIDROGREL) [Concomitant]
  4. ASPIRIN (ACETYLSALICYCLIC ACID) [Concomitant]
  5. LISINOPRIL (LISINOPRIL) [Concomitant]
  6. METFORMIN (METFORMIN) [Concomitant]
  7. PRAVASTATIN (PRAVASTATIN) [Concomitant]
  8. CLONIDINE (CLONIDINE) [Concomitant]
  9. METOPROLOL (METOPROLOL) [Concomitant]
  10. ALPRAZOLAM (ALPRAZOLAM) [Concomitant]
  11. VITAMIN D [Concomitant]
  12. POTASSIUM (POTASSIUM) [Concomitant]
  13. VITAMIN B12 [Concomitant]

REACTIONS (9)
  - Convulsion [None]
  - Circulatory collapse [None]
  - Chest pain [None]
  - Adverse drug reaction [None]
  - Gait disturbance [None]
  - Tongue spasm [None]
  - Gait disturbance [None]
  - Condition aggravated [None]
  - Tremor [None]
